FAERS Safety Report 8262336-6 (Version None)
Quarter: 2012Q2

REPORT INFORMATION
  Report Type: 
  Country: None (occurrence: None)
  Receive Date: 20120405
  Receipt Date: 20120327
  Transmission Date: 20120825
  Serious: Yes (Hospitalization)
  Sender: FDA-Public Use
  Company Number: JP-B.I. PHARMACEUTICALS,INC./RIDGEFIELD-2012-BP-05932NB

PATIENT
  Age: 71 Year
  Sex: Female

DRUGS (2)
  1. PRADAXA [Suspect]
     Dosage: 220 MG
     Route: 048
     Dates: start: 20110801
  2. ANTIBIOTIC PREPARATIONS [Concomitant]
     Route: 065

REACTIONS (2)
  - PNEUMONIA [None]
  - INTERNATIONAL NORMALISED RATIO INCREASED [None]
